FAERS Safety Report 5672673-7 (Version None)
Quarter: 2008Q1

REPORT INFORMATION
  Report Type: 
  Country: None (occurrence: None)
  Receive Date: 20080319
  Receipt Date: 20071204
  Transmission Date: 20080703
  Serious: No
  Sender: FDA-Public Use
  Company Number: US-KINGPHARMUSA00001-K200701578

PATIENT

DRUGS (1)
  1. ALTACE [Suspect]
     Dosage: UNK, SINGLE
     Route: 048
     Dates: start: 20071127, end: 20071127

REACTIONS (2)
  - BLOOD PRESSURE DECREASED [None]
  - HEART RATE INCREASED [None]
